FAERS Safety Report 20338907 (Version 2)
Quarter: 2022Q1

REPORT INFORMATION
  Report Type: Spontaneous
  Country: US (occurrence: US)
  Receive Date: 20220116
  Receipt Date: 20220330
  Transmission Date: 20220424
  Serious: Yes (Hospitalization)
  Sender: FDA-Public Use
  Company Number: US-BIOVITRUM-2022US00270

PATIENT
  Sex: Female

DRUGS (1)
  1. DOPTELET [Suspect]
     Active Substance: AVATROMBOPAG MALEATE
     Indication: Immune thrombocytopenia
     Dosage: 20-40 MG ALTERNATE DOSE DAILY
     Route: 048
     Dates: start: 20210930

REACTIONS (2)
  - Platelet count abnormal [Unknown]
  - Platelet count decreased [Unknown]
